FAERS Safety Report 24902158 (Version 1)
Quarter: 2025Q1

REPORT INFORMATION
  Report Type: Spontaneous
  Country: US (occurrence: US)
  Receive Date: 20250129
  Receipt Date: 20250129
  Transmission Date: 20250409
  Serious: Yes (Hospitalization, Other)
  Sender: RELIANCE GENEMEDIX
  Company Number: US-Reliance-000437

PATIENT
  Sex: Male

DRUGS (6)
  1. CAPECITABINE [Suspect]
     Active Substance: CAPECITABINE
     Indication: Colon cancer metastatic
     Dosage: 1000 MG/SQ.M TWO TIMES PER DAY (14 DAYS ON, 7 DAYS OFF)
  2. ALLOPURINOL [Concomitant]
     Active Substance: ALLOPURINOL
  3. LACTULOSE [Concomitant]
     Active Substance: LACTULOSE
  4. OLANZAPINE [Concomitant]
     Active Substance: OLANZAPINE
  5. QUETIAPINE [Concomitant]
     Active Substance: QUETIAPINE
  6. RIFAXIMIN [Concomitant]
     Active Substance: RIFAXIMIN

REACTIONS (2)
  - Hyperammonaemic encephalopathy [Recovered/Resolved]
  - Disease recurrence [Recovered/Resolved]
